FAERS Safety Report 5973067-7 (Version None)
Quarter: 2008Q4

REPORT INFORMATION
  Report Type: 
  Country: None (occurrence: None)
  Receive Date: 20081201
  Receipt Date: 20081117
  Transmission Date: 20090506
  Serious: Yes (Other)
  Sender: FDA-Public Use
  Company Number: GB-ELI_LILLY_AND_COMPANY-GB200811004161

PATIENT
  Age: 14 Year
  Sex: Female

DRUGS (4)
  1. FLUOXETINE HYDROCHLORIDE [Suspect]
     Dosage: 10 MG, UNK
     Route: 048
     Dates: start: 20080701, end: 20081101
  2. ANTIHISTAMINES [Concomitant]
  3. STEROID ANTIBACTERIALS [Concomitant]
  4. ZANTAC [Concomitant]

REACTIONS (3)
  - ABDOMINAL PAIN UPPER [None]
  - DEPRESSION [None]
  - GASTRITIS [None]
